FAERS Safety Report 4977377-1 (Version None)
Quarter: 2006Q2

REPORT INFORMATION
  Report Type: 
  Country: None (occurrence: None)
  Receive Date: 20060419
  Receipt Date: 20051004
  Transmission Date: 20061013
  Serious: Yes (Hospitalization, Disabling, Other)
  Sender: FDA-Public Use
  Company Number: US-MERCK-0510USA03123

PATIENT
  Age: 50 Year
  Sex: Female
  Weight: 59 kg

DRUGS (2)
  1. VIOXX [Suspect]
     Indication: OSTEOARTHRITIS
     Route: 048
     Dates: start: 19990401, end: 20040401
  2. VIOXX [Suspect]
     Route: 065

REACTIONS (35)
  - ANGINA PECTORIS [None]
  - ANGINA UNSTABLE [None]
  - ARTERIOSCLEROSIS CORONARY ARTERY [None]
  - ASTHENIA [None]
  - BACK DISORDER [None]
  - BACK PAIN [None]
  - CARDIAC DISORDER [None]
  - CHEST PAIN [None]
  - CORONARY ARTERY DISEASE [None]
  - DEEP VEIN THROMBOSIS [None]
  - DYSPNOEA [None]
  - DYSPNOEA EXERTIONAL [None]
  - EXTRASYSTOLES [None]
  - FEELING HOT [None]
  - HAEMATOMA [None]
  - HEART RATE INCREASED [None]
  - HEPATIC CYST [None]
  - HYPERHIDROSIS [None]
  - HYPERTENSION [None]
  - HYPOAESTHESIA [None]
  - INTERMITTENT CLAUDICATION [None]
  - MYOCARDIAL INFARCTION [None]
  - NAUSEA [None]
  - OEDEMA PERIPHERAL [None]
  - PAIN [None]
  - PAIN IN EXTREMITY [None]
  - PALPITATIONS [None]
  - PERIPHERAL VASCULAR DISORDER [None]
  - PLEURITIC PAIN [None]
  - POST PROCEDURAL COMPLICATION [None]
  - SYNCOPE [None]
  - THERAPY NON-RESPONDER [None]
  - THROMBOSIS [None]
  - VASCULAR PSEUDOANEURYSM [None]
  - VOMITING [None]
